FAERS Safety Report 6668567 (Version 2)
Quarter: 2020Q3

REPORT INFORMATION
  Report Type: Spontaneous
  Country: DE (occurrence: None)
  Receive Date: 19990119
  Receipt Date: 20001115
  Transmission Date: 20201104
  Serious: Yes (Death, Life-Threatening)
  Sender: FDA-Public Use
  Company Number: JAGER42501

PATIENT
  Age: 34 Year
  Sex: Female
  Weight: 54 kg

DRUGS (51)
  1. DIFLUCAN [Suspect]
     Active Substance: FLUCONAZOLE
     Indication: CANDIDA INFECTION
     Dosage: 200 MG, 2 IN 1 DAY(S), ORAL
     Route: 048
     Dates: start: 19960805, end: 19960816
  2. METHOTREXATE. [Suspect]
     Active Substance: METHOTREXATE
     Indication: BURKITT^S LYMPHOMA
     Dosage: MG, DAILY, THECAL (SEE IMAGE)
     Route: 042
     Dates: start: 19960802, end: 19960802
  3. SARGRAMOSTIM [Suspect]
     Active Substance: SARGRAMOSTIM
     Indication: PROPHYLAXIS
     Dosage: MCG, DAILY, SUBCU
     Route: 058
     Dates: start: 19960804, end: 19960815
  4. LACTULOSE. [Suspect]
     Active Substance: LACTULOSE
     Indication: CONSTIPATION
     Dosage: 1 IN 1 TIME(S), ORAL
     Route: 048
     Dates: start: 19960813, end: 19960813
  5. FLUCYTOSINE. [Suspect]
     Active Substance: FLUCYTOSINE
     Indication: FUNGAL INFECTION
     Dosage: 2 G, 2 IN 1 DAY(S), IV
     Route: 042
     Dates: start: 19960815
  6. CLEMASTINE [Suspect]
     Active Substance: CLEMASTINE
     Indication: PRURITUS
     Dosage: 1 IN 1 DAY(S), IV
     Route: 042
     Dates: start: 19960816
  7. ACTRAPID [Suspect]
     Active Substance: INSULIN HUMAN
     Indication: BLOOD TEST ABNORMAL
     Dosage: U, DAILY, SUBCU
     Route: 058
     Dates: start: 19960816
  8. TRIFLUPROMAZINE [Suspect]
     Active Substance: TRIFLUPROMAZINE
     Indication: NERVOUSNESS
     Dosage: 1 IN 1 DAY(S), IV
     Route: 042
     Dates: start: 19960816
  9. ALBUMIN (HUMAN) [Suspect]
     Active Substance: ALBUMIN HUMAN
     Dosage: ML, DAILY, IV
     Route: 042
     Dates: start: 19960816, end: 19960817
  10. CLINDAMYCIN. [Suspect]
     Active Substance: CLINDAMYCIN
     Indication: BRONCHOPULMONARY ASPERGILLOSIS
     Dosage: 200 MG, 1 IN 1 TIME(S), IV
     Route: 042
     Dates: start: 19960817, end: 19960817
  11. CIPROFLOXACIN. [Suspect]
     Active Substance: CIPROFLOXACIN
     Indication: BRONCHOPULMONARY ASPERGILLOSIS
     Dosage: 1 IN 1 TIME(S), IV
     Route: 042
     Dates: start: 19960817, end: 19960817
  12. ISOPTIN [Suspect]
     Active Substance: VERAPAMIL HYDROCHLORIDE
     Indication: ESSENTIAL HYPERTENSION
     Dosage: 50 MG, 1 IN 1 TIME(S), IV
     Route: 042
     Dates: start: 19960817, end: 19960817
  13. LIPOFUNDIN MCT 10% [Concomitant]
  14. TPN [Concomitant]
     Active Substance: AMINO ACIDS\DEXTROSE\ELECTROLYTES NOS\SOYBEAN OIL
  15. VANCOMYCIN [Suspect]
     Active Substance: VANCOMYCIN
     Indication: PNEUMONIA
     Dosage: 0.5 G, 3 IN 1 DAY(S), IV
     Route: 042
     Dates: start: 19960811
  16. AMPHOTERICIN B. [Suspect]
     Active Substance: AMPHOTERICIN B
     Indication: FUNGAL INFECTION
     Dosage: 40 MG, 1 IN 1 DAY(S), IV
     Route: 042
     Dates: start: 19960816
  17. NEUPOGEN [Suspect]
     Active Substance: FILGRASTIM
     Indication: AGRANULOCYTOSIS
     Dosage: 1 IN 1 DAY(S), SUBCU
     Route: 058
     Dates: start: 19960816, end: 19960817
  18. OPIUM. [Suspect]
     Active Substance: OPIUM
     Indication: PAIN
     Dosage: (1 DAILY 07?AUG?96): 5 DROPS/DAY
     Dates: start: 19960807, end: 19960812
  19. MORPHINE SULFATE. [Suspect]
     Active Substance: MORPHINE SULFATE
     Indication: PAIN
     Dosage: 1 MG/HR, IV
     Route: 042
     Dates: start: 19960808, end: 19960816
  20. DIPYRONE [Suspect]
     Active Substance: DIPYRONE
     Indication: PAIN
     Dosage: 1 IN 1 TIME (S), IV
     Route: 042
     Dates: start: 19960819, end: 19960819
  21. LASIX [Suspect]
     Active Substance: FUROSEMIDE
     Indication: FLUID OVERLOAD
     Dosage: 20 MG, 1 IN 1 TIME(S), ORAL
     Route: 048
     Dates: start: 19960814, end: 19960814
  22. SUPRARENIN [Suspect]
     Active Substance: EPINEPHRINE
     Indication: SHOCK
     Dosage: 3 IN 1 DAY(S), IV
     Route: 042
     Dates: start: 19960817
  23. PREDNISOLONE. [Suspect]
     Active Substance: PREDNISOLONE
     Indication: PRURITUS
     Dosage: 50 MG, 1 IN 1 TIME(S), IV
     Route: 042
     Dates: start: 19960817, end: 19960817
  24. STEROFUNDIN [Concomitant]
  25. MAGNORBIN 20% [Concomitant]
  26. POTASSIUM CHLORIDE. [Concomitant]
     Active Substance: POTASSIUM CHLORIDE
  27. PIRITRAMIDE [Suspect]
     Active Substance: PIRITRAMIDE
     Indication: PAIN
     Dosage: MG, DAILY, IV
     Route: 042
     Dates: start: 19960816
  28. VITAMINS [Suspect]
     Active Substance: VITAMINS
     Indication: HYPOVITAMINOSIS
     Dosage: ALT DAY, IV
     Route: 042
     Dates: start: 19960802, end: 19960816
  29. METOCLOPRAMIDE. [Suspect]
     Active Substance: METOCLOPRAMIDE
     Indication: GASTROINTESTINAL DISORDER
     Dosage: 2 IN 1 DAY(S), IV
     Route: 042
     Dates: start: 19960814
  30. DOLANTIN [Suspect]
     Active Substance: MEPERIDINE
     Indication: PAIN
     Dosage: MG, DAILY, IV
     Route: 042
     Dates: start: 19960816, end: 19960817
  31. UNSPECIFIED INGREDIENT [Concomitant]
     Active Substance: UNSPECIFIED INGREDIENT
  32. GLUKOSE 40% [Concomitant]
  33. ALLOPURINOL. [Suspect]
     Active Substance: ALLOPURINOL
     Indication: BLOOD TEST ABNORMAL
     Dosage: MG, DAILY, ORAL
     Route: 048
     Dates: start: 19960729, end: 19960812
  34. ZOFRAN [Suspect]
     Active Substance: ONDANSETRON HYDROCHLORIDE
     Indication: NAUSEA
     Dosage: 1 IN 1 DAY(S), IV
     Route: 042
     Dates: start: 19960807, end: 19960809
  35. GENTAMICIN SULFATE. [Suspect]
     Active Substance: GENTAMICIN SULFATE
     Indication: BRONCHOPULMONARY ASPERGILLOSIS
     Dosage: 120 MG, 3 IN 1 DAY(S), IV
     Route: 042
     Dates: start: 19960805, end: 19960811
  36. COW MILK FAT. [Suspect]
     Active Substance: COW MILK FAT
     Dosage: 1 IN 1 DAY(S), IV
     Route: 042
     Dates: start: 19960809, end: 19960816
  37. MEROPENEM. [Suspect]
     Active Substance: MEROPENEM
     Indication: PNEUMONIA
     Dosage: G, DAILY, IV
     Route: 042
     Dates: start: 19960816
  38. DOPAMINE [Suspect]
     Active Substance: DOPAMINE HYDROCHLORIDE
     Indication: SHOCK
     Dosage: MG, DAILY, IV
     Route: 042
     Dates: start: 19960817
  39. DORMICUM (MIDAZOLAM HYDROCHLORIDE) [Suspect]
     Active Substance: MIDAZOLAM HYDROCHLORIDE
     Dosage: 10 MG/HR, DAILY, IV
     Route: 042
     Dates: start: 19960818
  40. FORTECORTIN [Concomitant]
  41. PROTOSTAT [Suspect]
     Active Substance: METRONIDAZOLE
     Indication: PNEUMONIA
     Dosage: 500 MG, 3 IN 1 DAY(S), IV
     Route: 042
     Dates: start: 19960805, end: 19960809
  42. IMODIUM [Suspect]
     Active Substance: LOPERAMIDE HYDROCHLORIDE
     Indication: DIARRHOEA
     Dosage: 4 MG, 3 IN 1 DAY(S), ORAL
     Route: 048
     Dates: start: 19960731, end: 19960805
  43. PANTOZOL [Suspect]
     Active Substance: PANTOPRAZOLE SODIUM
     Indication: PROPHYLAXIS
     Dosage: 1 IN 1 DAY(S), ORAL
     Route: 048
     Dates: start: 19960804, end: 19960806
  44. PARACETAMOL [Suspect]
     Active Substance: ACETAMINOPHEN
     Indication: PAIN
     Dosage: (DAILY 05?AUG?96): 1?3 (SEE IMAGE)
     Dates: start: 19960815, end: 19960815
  45. AMOXICILLIN\CLAVULANATE POTASSIUM [Suspect]
     Active Substance: AMOXICILLIN\CLAVULANATE POTASSIUM
     Indication: PNEUMONIA
     Dosage: 2 G, 2 IN 1 DAY(S), IV
     Route: 042
     Dates: start: 19960807, end: 19960811
  46. GLUCOSE, LIQUID [Concomitant]
     Active Substance: GLUCOSE, LIQUID
  47. AMINOMEL [Concomitant]
  48. LIQUAEMIN SODIUM [Suspect]
     Active Substance: HEPARIN SODIUM
     Indication: PROPHYLAXIS
     Dosage: (DAILY 06?AUG?96): 7500 ? 10000 I.E.
     Dates: start: 19960806
  49. IMIPENEM [Suspect]
     Active Substance: IMIPENEM
     Indication: PNEUMONIA
     Dosage: 0.5 G, 1 IN 1 TIME(S), IV
     Route: 042
     Dates: start: 19960816, end: 19960816
  50. ANTRA [Suspect]
     Active Substance: OMEPRAZOLE
     Indication: PROPHYLAXIS
     Dosage: MG, DAILY, IV; 20 MG, DAILY, IV
     Route: 042
     Dates: start: 19960730, end: 19960804
  51. CLAFORAN [Suspect]
     Active Substance: CEFOTAXIME SODIUM
     Indication: BRONCHOPULMONARY ASPERGILLOSIS
     Dosage: 2 G, 3 IN 1 DAY(S), IV
     Route: 042
     Dates: start: 19960805, end: 19960809

REACTIONS (6)
  - Blister [None]
  - Stevens-Johnson syndrome [None]
  - Shock [None]
  - Toxic epidermal necrolysis [None]
  - Lip ulceration [None]
  - Pruritus [None]

NARRATIVE: CASE EVENT DATE: 19960819
